FAERS Safety Report 5144042-X (Version None)
Quarter: 2006Q4

REPORT INFORMATION
  Report Type: 
  Country: None (occurrence: None)
  Receive Date: 20061106
  Receipt Date: 20060320
  Transmission Date: 20070319
  Serious: No
  Sender: FDA-Public Use
  Company Number: US-GLAXOSMITHKLINE-A0598240A

PATIENT
  Age: 73 Year
  Sex: Male

DRUGS (1)
  1. AMOXICILLIN [Suspect]
     Dosage: 500ML THREE TIMES PER DAY
     Route: 048
     Dates: start: 20060301, end: 20060310

REACTIONS (1)
  - DRUG INEFFECTIVE [None]
